FAERS Safety Report 9268588 (Version 2)
Quarter: 2013Q2

REPORT INFORMATION
  Report Type: Spontaneous
  Country: PT (occurrence: PT)
  Receive Date: 20130502
  Receipt Date: 20130502
  Transmission Date: 20140414
  Serious: Yes (Death)
  Sender: FDA-Public Use
  Company Number: PT-BAXTER-2013BAX013411

PATIENT
  Age: 74 Year
  Sex: Male

DRUGS (11)
  1. PHYSIONEAL 40 GLUCOSE 2,27% P/V / 22,7 MG/ML [Suspect]
     Indication: RENAL FAILURE CHRONIC
     Route: 033
  2. PHYSIONEAL 40 GLUCOSE 3,86% P/V / 38,6 MG/ML [Suspect]
     Indication: RENAL FAILURE CHRONIC
     Route: 033
  3. EXTRANEAL 75MG/ML - SACO - 5 UNIDADE(S) - 2000 ML [Suspect]
     Indication: RENAL FAILURE CHRONIC
     Route: 033
  4. FUROSEMIDE [Concomitant]
     Indication: PRODUCT USED FOR UNKNOWN INDICATION
     Route: 048
  5. FERROUS SULFATE [Concomitant]
     Indication: PRODUCT USED FOR UNKNOWN INDICATION
     Route: 048
  6. RENAGEL [Concomitant]
     Indication: PRODUCT USED FOR UNKNOWN INDICATION
     Route: 048
  7. INSULIN [Concomitant]
     Indication: DIABETES MELLITUS
     Dosage: 38 U/BREAKFAST - 6U/DINNER
     Route: 058
  8. SIMVASTATIN [Concomitant]
     Indication: PRODUCT USED FOR UNKNOWN INDICATION
     Route: 048
  9. FOLIC ACID [Concomitant]
     Indication: PRODUCT USED FOR UNKNOWN INDICATION
     Route: 048
  10. OMEPRAZOLE [Concomitant]
     Indication: PRODUCT USED FOR UNKNOWN INDICATION
     Route: 048
  11. SODIUM PICOSULPHATE [Concomitant]
     Indication: PRODUCT USED FOR UNKNOWN INDICATION
     Route: 048

REACTIONS (3)
  - Sudden death [Fatal]
  - Hypervolaemia [Unknown]
  - Faecal volume increased [None]
